FAERS Safety Report 6246037-1 (Version None)
Quarter: 2009Q2

REPORT INFORMATION
  Report Type: 
  Country: None (occurrence: None)
  Receive Date: 20090626
  Receipt Date: 20081222
  Transmission Date: 20091009
  Serious: No
  Sender: FDA-Public Use
  Company Number: A0759484A

PATIENT
  Age: 36 Year
  Sex: Female

DRUGS (4)
  1. IMITREX [Suspect]
  2. B2 [Concomitant]
  3. MAGNESIUM SULFATE [Concomitant]
     Indication: SUPPLEMENTATION THERAPY
  4. MULTI-VITAMIN [Concomitant]

REACTIONS (3)
  - SKIN BURNING SENSATION [None]
  - URTICARIA [None]
  - VERTIGO [None]
